FAERS Safety Report 5669748-5 (Version None)
Quarter: 2008Q1

REPORT INFORMATION
  Report Type: 
  Country: None (occurrence: None)
  Receive Date: 20080317
  Receipt Date: 20080312
  Transmission Date: 20080703
  Serious: Yes (Other)
  Sender: FDA-Public Use
  Company Number: US-ASTRAZENECA-2008UW03919

PATIENT
  Age: 53 Year
  Sex: Male

DRUGS (6)
  1. CRESTOR [Suspect]
     Indication: BLOOD CHOLESTEROL INCREASED
     Route: 048
     Dates: start: 20070501
  2. DIOVAN HCT [Concomitant]
     Indication: HYPERTENSION
  3. OMEGA FATTY ACIDS [Concomitant]
  4. FOLIC ACID [Concomitant]
  5. ASPIRIN [Concomitant]
  6. EYE DROPS [Concomitant]
     Indication: GLAUCOMA

REACTIONS (6)
  - BLOOD CREATINE PHOSPHOKINASE INCREASED [None]
  - ECCHYMOSIS [None]
  - MUSCLE HAEMORRHAGE [None]
  - MUSCLE RUPTURE [None]
  - MYALGIA [None]
  - RHABDOMYOLYSIS [None]
